FAERS Safety Report 7183606-9 (Version None)
Quarter: 2010Q4

REPORT INFORMATION
  Report Type: 
  Country: None (occurrence: None)
  Receive Date: 20101220
  Receipt Date: 20101220
  Transmission Date: 20110411
  Serious: Yes (Other)
  Sender: FDA-Public Use
  Company Number: None

PATIENT
  Sex: Male
  Weight: 84.5 kg

DRUGS (2)
  1. KETOROLAC TROMETHAMINE [Suspect]
     Indication: CELLULITIS ORBITAL
     Dosage: 60 MG ONCE INTRA MUSCULAR
     Route: 030
     Dates: start: 20101217
  2. KETOROLAC TROMETHAMINE [Suspect]
     Indication: PAIN
     Dosage: 60 MG ONCE INTRA MUSCULAR
     Route: 030
     Dates: start: 20101217

REACTIONS (2)
  - ANGIOEDEMA [None]
  - HYPERSENSITIVITY [None]
